FAERS Safety Report 5241272-3 (Version None)
Quarter: 2007Q1

REPORT INFORMATION
  Report Type: 
  Country: None (occurrence: None)
  Receive Date: 20070215
  Receipt Date: 20070215
  Transmission Date: 20070707
  Serious: Yes (Life-Threatening)
  Sender: FDA-Public Use
  Company Number: None

PATIENT
  Age: 20 Year
  Sex: Male
  Weight: 63 kg

DRUGS (1)
  1. NOVOSEVEN [Suspect]
     Indication: HAEMORRHAGE
     Dosage: 4800MCG Q2H IV
     Route: 042
     Dates: start: 20070106, end: 20070110

REACTIONS (2)
  - BLOOD BILIRUBIN INCREASED [None]
  - VENOOCCLUSIVE LIVER DISEASE [None]
